FAERS Safety Report 9555675 (Version 1)
Quarter: 2013Q3

REPORT INFORMATION
  Report Type: Spontaneous
  Country: US (occurrence: None)
  Receive Date: 20130815
  Receipt Date: 20130815
  Transmission Date: 20140515
  Serious: Yes (Other)
  Sender: FDA-Public Use
  Company Number: ADR-2012-01533

PATIENT
  Age: 67 Year
  Sex: Male

DRUGS (4)
  1. BACLOFEN INTRATHECAL(BACLOFEN INJECTION) [Suspect]
     Indication: PAIN
  2. BACLOFEN INTRATHECAL(BACLOFEN INJECTION) [Suspect]
     Indication: PAIN
  3. PRIALT (55 MCG/DAY) [Concomitant]
  4. DILAUDID (3.9 MG/DAY) [Concomitant]

REACTIONS (3)
  - Overdose [None]
  - Mental status changes [None]
  - Depressed level of consciousness [None]
